FAERS Safety Report 15943674 (Version 2)
Quarter: 2019Q1

REPORT INFORMATION
  Report Type: Spontaneous
  Country: None (occurrence: PK)
  Receive Date: 20190210
  Receipt Date: 20190306
  Transmission Date: 20190417
  Serious: Yes (Death)
  Sender: FDA-Public Use
  Company Number: PHHY2019PK030810

PATIENT
  Age: 70 Year
  Sex: Male

DRUGS (1)
  1. UPERIO [Suspect]
     Active Substance: SACUBITRIL\VALSARTAN
     Indication: CARDIAC FAILURE
     Dosage: 100 MG, BID
     Route: 048
     Dates: start: 20181109

REACTIONS (8)
  - Cough [Fatal]
  - Pulmonary oedema [Fatal]
  - Cardio-respiratory arrest [Fatal]
  - Jugular vein distension [Fatal]
  - Dyspnoea [Fatal]
  - Orthopnoea [Fatal]
  - Heart sounds abnormal [Fatal]
  - Oedema peripheral [Fatal]
